FAERS Safety Report 14238765 (Version 2)
Quarter: 2018Q1

REPORT INFORMATION
  Report Type: Report from Study
  Country: US (occurrence: US)
  Receive Date: 20171130
  Receipt Date: 20180202
  Transmission Date: 20180508
  Serious: Yes (Hospitalization)
  Sender: FDA-Public Use
  Company Number: US-JNJFOC-20171000239

PATIENT
  Age: 65 Year
  Sex: Male

DRUGS (25)
  1. IMBRUVICA [Suspect]
     Active Substance: IBRUTINIB
     Indication: LYMPHOMA
     Route: 048
     Dates: start: 2017
  2. ALEVE [Concomitant]
     Active Substance: NAPROXEN SODIUM
     Route: 048
  3. VALACYCLOVIR [Concomitant]
     Active Substance: VALACYCLOVIR HYDROCHLORIDE
     Route: 048
  4. HYDROXYZINE [Concomitant]
     Active Substance: HYDROXYZINE HYDROCHLORIDE
     Route: 048
  5. COMPAZINE [Concomitant]
     Active Substance: PROCHLORPERAZINE MALEATE
     Route: 048
  6. IMBRUVICA [Suspect]
     Active Substance: IBRUTINIB
     Indication: MARGINAL ZONE LYMPHOMA
     Route: 048
     Dates: start: 2017
  7. ASPIRIN. [Concomitant]
     Active Substance: ASPIRIN
  8. IMBRUVICA [Suspect]
     Active Substance: IBRUTINIB
     Indication: MARGINAL ZONE LYMPHOMA
     Route: 048
     Dates: start: 20170817, end: 2017
  9. GLUCOSAMINE AND CHONDROITIN SULFATE [Concomitant]
     Dosage: 500MG-400MG
     Route: 048
  10. LOPERAMIDE [Concomitant]
     Active Substance: LOPERAMIDE
     Route: 048
  11. FLUTICASONE. [Concomitant]
     Active Substance: FLUTICASONE
  12. NEXIUM [Concomitant]
     Active Substance: ESOMEPRAZOLE MAGNESIUM
     Route: 048
  13. OMEPRAZOLE. [Concomitant]
     Active Substance: OMEPRAZOLE
  14. SELENIUM [Concomitant]
     Active Substance: SELENIUM
  15. MUCINEX [Concomitant]
     Active Substance: GUAIFENESIN
  16. IMBRUVICA [Suspect]
     Active Substance: IBRUTINIB
     Indication: B-CELL SMALL LYMPHOCYTIC LYMPHOMA
     Route: 048
     Dates: start: 20170817, end: 2017
  17. ESCITALOPRAM [Concomitant]
     Active Substance: ESCITALOPRAM OXALATE
     Route: 048
  18. LORAZEPAM. [Concomitant]
     Active Substance: LORAZEPAM
     Route: 048
  19. NEURONTIN [Concomitant]
     Active Substance: GABAPENTIN
     Route: 048
  20. IMBRUVICA [Suspect]
     Active Substance: IBRUTINIB
     Indication: LYMPHOMA
     Route: 048
     Dates: start: 20170817, end: 2017
  21. CETIRIZINE [Concomitant]
     Active Substance: CETIRIZINE HYDROCHLORIDE
     Route: 048
  22. WELLBUTRIN [Concomitant]
     Active Substance: BUPROPION HYDROCHLORIDE
  23. VITAMIN D3 [Concomitant]
     Active Substance: CHOLECALCIFEROL
  24. NIACIN. [Concomitant]
     Active Substance: NIACIN
  25. IMBRUVICA [Suspect]
     Active Substance: IBRUTINIB
     Indication: B-CELL SMALL LYMPHOCYTIC LYMPHOMA
     Route: 048
     Dates: start: 2017

REACTIONS (17)
  - Arthralgia [Unknown]
  - Upper-airway cough syndrome [Unknown]
  - Fatigue [Unknown]
  - Immunosuppression [Unknown]
  - Thrombocytopenia [Unknown]
  - Weight increased [Unknown]
  - Conjunctival pallor [Unknown]
  - Headache [Unknown]
  - Back pain [Unknown]
  - Neuropathy peripheral [Unknown]
  - Pain [Unknown]
  - Product use in unapproved indication [Unknown]
  - Peripheral swelling [Unknown]
  - Oedema peripheral [Unknown]
  - Off label use [Unknown]
  - Petechiae [Recovered/Resolved]
  - Joint swelling [Unknown]

NARRATIVE: CASE EVENT DATE: 201708
